FAERS Safety Report 6390803-9 (Version None)
Quarter: 2009Q4

REPORT INFORMATION
  Report Type: 
  Country: None (occurrence: None)
  Receive Date: 20091001
  Receipt Date: 20090810
  Transmission Date: 20100525
  Serious: No
  Sender: FDA-Public Use
  Company Number: 1000008130

PATIENT
  Age: 78 Year
  Sex: Female

DRUGS (3)
  1. BYSTOLIC [Suspect]
     Indication: HYPERTENSION
     Dosage: ORAL
     Route: 048
  2. DIOVAN HCT [Concomitant]
  3. VERELAN [Concomitant]

REACTIONS (1)
  - UNEVALUABLE EVENT [None]
